FAERS Safety Report 13692530 (Version 1)
Quarter: 2017Q2

REPORT INFORMATION
  Report Type: Other
  Country: CN (occurrence: CN)
  Receive Date: 20170627
  Receipt Date: 20170627
  Transmission Date: 20170830
  Serious: Yes (Hospitalization)
  Sender: FDA-Public Use
  Company Number: CN-ORCHID HEALTHCARE-2022516

PATIENT
  Age: 31 Year
  Sex: Male

DRUGS (6)
  1. GANCICLOVIR. [Suspect]
     Active Substance: GANCICLOVIR
     Route: 061
  2. FAMCICLOVIR. [Suspect]
     Active Substance: FAMCICLOVIR
     Route: 048
  3. LEVOFLOXACIN. [Suspect]
     Active Substance: LEVOFLOXACIN
     Indication: KERATITIS
     Route: 065
  4. PRANOPROFEN [Suspect]
     Active Substance: PRANOPROFEN
     Route: 047
  5. INTERFERONS [Suspect]
     Active Substance: INTERFERON
     Route: 065
  6. DEPROTEINIZED CALF BLOOD EXTRACT [Suspect]
     Active Substance: BLOOD, BOVINE
     Route: 061

REACTIONS (1)
  - Keratitis fungal [Recovered/Resolved]
